FAERS Safety Report 19508108 (Version 1)
Quarter: 2021Q3

REPORT INFORMATION
  Report Type: Spontaneous
  Country: CA (occurrence: CA)
  Receive Date: 20210708
  Receipt Date: 20210708
  Transmission Date: 20211014
  Serious: Yes (Other)
  Sender: FDA-Public Use
  Company Number: CA-PFIZER INC-2021795360

PATIENT

DRUGS (1)
  1. LEVOFLOXACIN. [Suspect]
     Active Substance: LEVOFLOXACIN
     Dosage: UNK

REACTIONS (13)
  - Headache [Unknown]
  - Insomnia [Unknown]
  - Dizziness [Unknown]
  - Nausea [Unknown]
  - Nerve injury [Unknown]
  - Dysphagia [Unknown]
  - Head injury [Unknown]
  - Hypotension [Unknown]
  - Fall [Unknown]
  - Gait disturbance [Unknown]
  - Nightmare [Unknown]
  - Diabetes mellitus [Unknown]
  - Blood glucose decreased [Unknown]
